FAERS Safety Report 12833418 (Version 2)
Quarter: 2016Q4

REPORT INFORMATION
  Report Type: Spontaneous
  Country: US (occurrence: US)
  Receive Date: 20161010
  Receipt Date: 20161019
  Transmission Date: 20170207
  Serious: No
  Sender: FDA-Public Use
  Company Number: US-BAYER-2016-194942

PATIENT
  Sex: Female
  Weight: 64.4 kg

DRUGS (3)
  1. ALEVE [Suspect]
     Active Substance: NAPROXEN SODIUM
     Indication: PAIN
  2. ALEVE [Suspect]
     Active Substance: NAPROXEN SODIUM
     Indication: PYREXIA
     Route: 048
  3. BAYER LOW DOSE [Suspect]
     Active Substance: ASPIRIN
     Dosage: 1 DF, UNK
     Route: 048

REACTIONS (3)
  - Photosensitivity reaction [Recovering/Resolving]
  - Intentional product use issue [Unknown]
  - Product use issue [Unknown]
